FAERS Safety Report 17605361 (Version 1)
Quarter: 2020Q1

REPORT INFORMATION
  Report Type: Spontaneous
  Country: US (occurrence: US)
  Receive Date: 20200331
  Receipt Date: 20200331
  Transmission Date: 20200409
  Serious: Yes (Hospitalization)
  Sender: FDA-Public Use
  Company Number: None

PATIENT
  Age: 39 Year
  Sex: Male
  Weight: 62.1 kg

DRUGS (6)
  1. HYOSCYAMINE 0.125 MG [Concomitant]
  2. CUBICIN [Suspect]
     Active Substance: DAPTOMYCIN
  3. ACETAMINOPHEN 325 MG [Concomitant]
     Active Substance: ACETAMINOPHEN
     Dates: start: 20200305
  4. TAMSULOSIN [Concomitant]
     Active Substance: TAMSULOSIN
  5. IBUPROFEN. [Concomitant]
     Active Substance: IBUPROFEN
  6. LVERMECTIN [Concomitant]
     Dates: end: 20200321

REACTIONS (5)
  - Pain in extremity [None]
  - Blood creatine phosphokinase decreased [None]
  - Alanine aminotransferase increased [None]
  - Aspartate aminotransferase increased [None]
  - Blood alkaline phosphatase increased [None]

NARRATIVE: CASE EVENT DATE: 20200327
